FAERS Safety Report 23574093 (Version 2)
Quarter: 2024Q1

REPORT INFORMATION
  Report Type: Spontaneous
  Country: PT (occurrence: PT)
  Receive Date: 20240228
  Receipt Date: 20240304
  Transmission Date: 20240410
  Serious: Yes (Death, Other)
  Sender: FDA-Public Use
  Company Number: PT-SAMSUNG BIOEPIS-SB-2024-06502

PATIENT
  Age: 60 Year
  Sex: Male

DRUGS (13)
  1. INFLIXIMAB [Suspect]
     Active Substance: INFLIXIMAB
     Indication: Ankylosing spondylitis
     Dosage: UNKNOWN, FOR PAST 9 YEARS
     Route: 042
     Dates: start: 2013
  2. INFLIXIMAB [Suspect]
     Active Substance: INFLIXIMAB
     Indication: Autoimmune haemolytic anaemia
  3. PREDNISOLONE [Suspect]
     Active Substance: PREDNISOLONE
     Indication: T-cell lymphoma refractory
     Dosage: UNKNOWN, LOW DOSE ADMINISTERED FOR THE PAST 9 YEARS
     Route: 065
     Dates: start: 2013
  4. PREDNISOLONE [Suspect]
     Active Substance: PREDNISOLONE
     Indication: Autoimmune haemolytic anaemia
  5. PREDNISOLONE [Suspect]
     Active Substance: PREDNISOLONE
     Indication: Ankylosing spondylitis
  6. VINCRISTINE [Suspect]
     Active Substance: VINCRISTINE
     Indication: Angiocentric lymphoma
     Dosage: UNKNOWN
     Route: 065
  7. ETOPOSIDE [Suspect]
     Active Substance: ETOPOSIDE
     Indication: Angiocentric lymphoma
     Dosage: UNKNOWN
     Route: 065
  8. CARBOPLATIN [Suspect]
     Active Substance: CARBOPLATIN
     Indication: Angiocentric lymphoma
     Dosage: UNKNOWN
     Route: 065
  9. DOXORUBICIN [Suspect]
     Active Substance: DOXORUBICIN
     Indication: Angiocentric lymphoma
     Dosage: UNKNOWN
     Route: 065
  10. RITUXIMAB [Suspect]
     Active Substance: RITUXIMAB
     Indication: Angiocentric lymphoma
     Dosage: UNKNOWN
     Route: 065
  11. DEXAMETHASONE ACETATE [Suspect]
     Active Substance: DEXAMETHASONE ACETATE
     Indication: Angiocentric lymphoma
     Dosage: UNKNOWN
     Route: 065
  12. IFOSFAMIDE [Suspect]
     Active Substance: IFOSFAMIDE
     Indication: Angiocentric lymphoma
     Dosage: UNKNOWN
     Route: 065
  13. CYCLOPHOSPHAMIDE [Suspect]
     Active Substance: CYCLOPHOSPHAMIDE
     Indication: T-cell lymphoma refractory
     Dosage: UNKNOWN
     Route: 065

REACTIONS (7)
  - Gastrointestinal toxicity [Fatal]
  - Epstein-Barr virus associated lymphoma [Fatal]
  - Haematotoxicity [Fatal]
  - Immunosuppression [Unknown]
  - Infection [Unknown]
  - Hepatosplenomegaly [Fatal]
  - T-cell lymphoma refractory [Fatal]
